FAERS Safety Report 7811317-2 (Version None)
Quarter: 2011Q4

REPORT INFORMATION
  Report Type: 
  Country: None (occurrence: None)
  Receive Date: 20111013
  Receipt Date: 20111004
  Transmission Date: 20120403
  Serious: Yes (Hospitalization, Other)
  Sender: FDA-Public Use
  Company Number: IL-SANOFI-AVENTIS-2011SA044076

PATIENT
  Age: 82 Year
  Sex: Male
  Weight: 109 kg

DRUGS (12)
  1. METFORMIN HYDROCHLORIDE [Concomitant]
     Route: 065
  2. BISOPROLOL [Concomitant]
     Route: 065
  3. LERCANIDIPINE [Concomitant]
     Route: 065
  4. WARFARIN SODIUM [Concomitant]
     Dosage: 17.5 MG WEEKLY
     Route: 065
     Dates: end: 20110201
  5. SPIRONOLACTONE [Concomitant]
     Route: 065
  6. DOXAZOSIN MESYLATE [Concomitant]
     Route: 065
  7. ASPIRIN [Concomitant]
     Route: 065
     Dates: end: 20110201
  8. SIMVASTATIN [Concomitant]
     Route: 065
  9. CLOPIDOGREL [Concomitant]
     Route: 065
  10. RAMIPRIL [Concomitant]
     Route: 065
  11. DRONEDARONE HCL [Suspect]
     Indication: ATRIAL FIBRILLATION
     Route: 048
     Dates: start: 20110109
  12. WARFARIN SODIUM [Concomitant]
     Route: 065
     Dates: start: 20110216

REACTIONS (3)
  - RECTAL HAEMORRHAGE [None]
  - CARDIAC FAILURE [None]
  - BLOOD DISORDER [None]
